FAERS Safety Report 8144028-7 (Version None)
Quarter: 2012Q1

REPORT INFORMATION
  Report Type: 
  Country: None (occurrence: None)
  Receive Date: 20120217
  Receipt Date: 20120217
  Transmission Date: 20120608
  Serious: Yes (Death)
  Sender: FDA-Public Use
  Company Number: None

PATIENT
  Age: 53 Year
  Sex: Male
  Weight: 77.11 kg

DRUGS (1)
  1. SIMVASTATIN [Suspect]
     Indication: ATRIOVENTRICULAR BLOCK
     Dosage: 40 MG
     Route: 048
     Dates: start: 20090901, end: 20091108

REACTIONS (4)
  - PAIN [None]
  - PSYCHOTIC DISORDER [None]
  - INSOMNIA [None]
  - ABNORMAL BEHAVIOUR [None]
